FAERS Safety Report 12639754 (Version 1)
Quarter: 2016Q3

REPORT INFORMATION
  Report Type: Report from Study
  Country: US (occurrence: US)
  Receive Date: 20160810
  Receipt Date: 20160810
  Transmission Date: 20161109
  Serious: Yes (Other)
  Sender: FDA-Public Use
  Company Number: US-ROCHE-804249

PATIENT
  Age: 57 Year
  Sex: Female
  Weight: 49.9 kg

DRUGS (3)
  1. VISMODEGIB [Suspect]
     Active Substance: VISMODEGIB
     Indication: GLIOBLASTOMA MULTIFORME
     Dosage: LAST DOSE:21 OCT 2010, TOTAL DOSE:4200MG,150MGQDX7 DAYSPRIOR TO SURGICALRESECTION, RESTART WITHIN28D
     Route: 048
  2. VISMODEGIB [Suspect]
     Active Substance: VISMODEGIB
     Dosage: LAST DOSE:21 OCT 2010, TOTAL DOSE:4200MG,150MGQDX7 DAYSPRIOR TO SURGICALRESECTION, RESTART WITHIN28D
     Route: 048
  3. VISMODEGIB [Suspect]
     Active Substance: VISMODEGIB
     Dosage: LAST DOSE RECEIVED ON 22/OCT/2010?COURSE 2
     Route: 048

REACTIONS (1)
  - Lymphocyte count decreased [Unknown]

NARRATIVE: CASE EVENT DATE: 20100925
